FAERS Safety Report 16348802 (Version 3)
Quarter: 2019Q3

REPORT INFORMATION
  Report Type: Spontaneous
  Country: US (occurrence: US)
  Receive Date: 20190523
  Receipt Date: 20190809
  Transmission Date: 20191004
  Serious: No
  Sender: FDA-Public Use
  Company Number: US-GLAXOSMITHKLINE-US2019AMR071494

PATIENT
  Age: 77 Year
  Sex: Female

DRUGS (1)
  1. TRELEGY ELLIPTA [Suspect]
     Active Substance: FLUTICASONE FUROATE\UMECLIDINIUM BROMIDE\VILANTEROL TRIFENATATE
     Indication: PRODUCT USED FOR UNKNOWN INDICATION
     Dosage: 100/62.5/25UG
     Route: 055
     Dates: start: 20181214

REACTIONS (4)
  - Hypoacusis [Unknown]
  - Increased upper airway secretion [Unknown]
  - Nasopharyngitis [Unknown]
  - Otorrhoea [Unknown]

NARRATIVE: CASE EVENT DATE: 201904
